FAERS Safety Report 24961002 (Version 4)
Quarter: 2025Q4

REPORT INFORMATION
  Report Type: Spontaneous
  Country: EU (occurrence: EU)
  Receive Date: 20250212
  Receipt Date: 20251217
  Transmission Date: 20260118
  Serious: Yes (Hospitalization, Other)
  Sender: BRISTOL-MYERS SQUIBB COMPANY
  Company Number: EU-BRISTOL-MYERS SQUIBB COMPANY-2024-197023

PATIENT
  Age: 88 Year
  Sex: Female

DRUGS (2)
  1. APIXABAN [Suspect]
     Active Substance: APIXABAN
     Indication: Atrial fibrillation
  2. APIXABAN [Suspect]
     Active Substance: APIXABAN

REACTIONS (7)
  - Haemarthrosis [Unknown]
  - Catheter site haemorrhage [Unknown]
  - Gingival bleeding [Unknown]
  - Blood creatinine increased [Unknown]
  - Condition aggravated [Unknown]
  - Anaemia [Unknown]
  - Overdose [Unknown]
